FAERS Safety Report 10469454 (Version 2)
Quarter: 2014Q3

REPORT INFORMATION
  Report Type: Spontaneous
  Country: CA (occurrence: CA)
  Receive Date: 20140923
  Receipt Date: 20140923
  Transmission Date: 20150326
  Serious: Yes (Other)
  Sender: FDA-Public Use
  Company Number: CA-RANBAXY-2012US-53765

PATIENT
  Age: 84 Year
  Sex: Male

DRUGS (3)
  1. CITALOPRAM [Concomitant]
     Active Substance: CITALOPRAM HYDROBROMIDE
     Indication: SEXUALLY INAPPROPRIATE BEHAVIOUR
     Route: 065
  2. MEDROXYPROGESTERONE [Suspect]
     Active Substance: MEDROXYPROGESTERONE
     Indication: SEXUALLY INAPPROPRIATE BEHAVIOUR
     Dosage: UNK
     Route: 048
  3. RISPERIDONE. [Suspect]
     Active Substance: RISPERIDONE
     Indication: SEXUALLY INAPPROPRIATE BEHAVIOUR
     Dosage: UNK
     Route: 065

REACTIONS (2)
  - Sexually inappropriate behaviour [Unknown]
  - Fatigue [Unknown]
